FAERS Safety Report 19843699 (Version 1)
Quarter: 2021Q3

REPORT INFORMATION
  Report Type: Other
  Country: US (occurrence: US)
  Receive Date: 20210917
  Receipt Date: 20210917
  Transmission Date: 20211014
  Serious: Yes (Other)
  Sender: FDA-Public Use
  Company Number: US-ROCHE-2906887

PATIENT

DRUGS (1)
  1. ATEZOLIZUMAB. [Suspect]
     Active Substance: ATEZOLIZUMAB
     Indication: NON-SMALL CELL LUNG CANCER
     Route: 065

REACTIONS (6)
  - Cardiac arrest [Unknown]
  - Cardiogenic shock [Unknown]
  - Myocarditis [Unknown]
  - Ventricular fibrillation [Unknown]
  - Acute myocardial infarction [Unknown]
  - Cardiac failure [Unknown]
